FAERS Safety Report 5089155-6 (Version None)
Quarter: 2006Q3

REPORT INFORMATION
  Report Type: 
  Country: None (occurrence: None)
  Receive Date: 20060822
  Receipt Date: 20060808
  Transmission Date: 20061208
  Serious: Yes (Hospitalization)
  Sender: FDA-Public Use
  Company Number: PHBS2006ES12109

PATIENT
  Age: 61 Year
  Sex: Female

DRUGS (4)
  1. CARBAMAZEPINE [Suspect]
     Indication: NEURALGIA
     Dosage: 1200 MG/DAY
  2. METHADONE HCL [Suspect]
     Indication: BONE PAIN
     Dosage: 120 MG/DAY; 160 MG/DAY; 210 MG/DAY; 75 MG/DAY
  3. GABAPENTIN [Concomitant]
  4. MORPHINE [Concomitant]

REACTIONS (9)
  - BONE PAIN [None]
  - CONDITION AGGRAVATED [None]
  - DRUG INTERACTION [None]
  - DRUG TOXICITY [None]
  - DRUG WITHDRAWAL SYNDROME [None]
  - INADEQUATE ANALGESIA [None]
  - LOSS OF CONSCIOUSNESS [None]
  - RESPIRATORY DEPRESSION [None]
  - SEDATION [None]
